FAERS Safety Report 8710954 (Version 3)
Quarter: 2014Q1

REPORT INFORMATION
  Report Type: Spontaneous
  Country: US (occurrence: US)
  Receive Date: 20120807
  Receipt Date: 20140210
  Transmission Date: 20141002
  Serious: Yes (Hospitalization, Other)
  Sender: FDA-Public Use
  Company Number: US-BAYER-2012-079435

PATIENT
  Age: 28 Year
  Sex: Female
  Weight: 86.17 kg

DRUGS (3)
  1. MIRENA [Suspect]
     Indication: CONTRACEPTION
     Dosage: 20 MCG/24HR, CONT
     Route: 015
     Dates: start: 20090422, end: 20100915
  2. MIRENA [Suspect]
     Indication: MENORRHAGIA
  3. TRIAMCINOLONE ACETONIDE [Concomitant]
     Dosage: 0.1%
     Route: 061

REACTIONS (13)
  - Uterine perforation [None]
  - Genital haemorrhage [None]
  - Menstruation irregular [None]
  - Abdominal pain [None]
  - Injury [None]
  - Emotional distress [None]
  - Pain [None]
  - Device dislocation [None]
  - Abdominal pain lower [None]
  - Menorrhagia [None]
  - Loss of libido [None]
  - Nervousness [None]
  - Device issue [None]
